FAERS Safety Report 19540657 (Version 1)
Quarter: 2021Q3

REPORT INFORMATION
  Report Type: Spontaneous
  Country: NL (occurrence: FR)
  Receive Date: 20210713
  Receipt Date: 20210713
  Transmission Date: 20211014
  Serious: Yes (Hospitalization)
  Sender: FDA-Public Use
  Company Number: FR-FRESENIUS KABI-FK202106984

PATIENT
  Age: 61 Year
  Sex: Male
  Weight: 91 kg

DRUGS (1)
  1. OXALIPLATINA KABI 5MG/ML POWDER FOR SOLUTION FOR INFUSION [Suspect]
     Active Substance: OXALIPLATIN
     Indication: NEOPLASM MALIGNANT
     Dosage: OXALIPLATIN KABI
     Route: 042
     Dates: start: 20210615, end: 20210615

REACTIONS (2)
  - Hyperthermia [Unknown]
  - Chills [Unknown]

NARRATIVE: CASE EVENT DATE: 20210615
